FAERS Safety Report 5210984-X (Version None)
Quarter: 2006Q4

REPORT INFORMATION
  Report Type: 
  Country: None (occurrence: None)
  Receive Date: 20061130
  Receipt Date: 20060705
  Transmission Date: 20070319
  Serious: Yes (Disabling, Other)
  Sender: FDA-Public Use
  Company Number: WAES 0509USA04777

PATIENT
  Age: 68 Year
  Sex: Female

DRUGS (19)
  1. FOSAMAX [Suspect]
     Indication: OSTEOPOROSIS
     Dosage: 70 MG/WKY/PO
     Route: 048
     Dates: start: 20040301, end: 20050401
  2. ACTOS [Concomitant]
  3. DEMADEX [Concomitant]
  4. LIPITOR [Concomitant]
  5. MAVIK [Concomitant]
  6. MIRAPEX [Concomitant]
  7. OCUVITE [Concomitant]
  8. PROTONIX [Concomitant]
  9. PROTONIX [Concomitant]
  10. ASPIRIN [Concomitant]
  11. CALCIUM (UNSPECIFIED) [Concomitant]
  12. INSULIN [Concomitant]
  13. LYSINE [Concomitant]
  14. NIACIN [Concomitant]
  15. SELENIUM SULFIDE [Concomitant]
  16. SPIRONOLACTONE [Concomitant]
  17. TRIMETHOPRIM [Concomitant]
  18. VITAMIN E [Concomitant]
  19. ZINC (UNSPECIFIED) [Concomitant]

REACTIONS (7)
  - BLOOD CREATININE INCREASED [None]
  - BLOOD UREA INCREASED [None]
  - BONE LESION [None]
  - FLANK PAIN [None]
  - NAUSEA [None]
  - OSTEOMYELITIS [None]
  - OSTEONECROSIS [None]
